FAERS Safety Report 6546090-1 (Version None)
Quarter: 2010Q1

REPORT INFORMATION
  Report Type: 
  Country: None (occurrence: None)
  Receive Date: 20100122
  Receipt Date: 20100120
  Transmission Date: 20100710
  Serious: Yes (Other)
  Sender: FDA-Public Use
  Company Number: US-ASTRAZENECA-2007UW14871

PATIENT
  Age: 375 Month
  Sex: Female
  Weight: 88.5 kg

DRUGS (5)
  1. SEROQUEL [Suspect]
     Indication: BIPOLAR DISORDER
     Dosage: 200 MG TO 400 MG
     Route: 048
     Dates: start: 20041101, end: 20060701
  2. LITHIUM [Concomitant]
  3. WELLBUTRIN [Concomitant]
  4. ALTACE [Concomitant]
  5. ZOCOR [Concomitant]

REACTIONS (11)
  - ABDOMINAL PAIN UPPER [None]
  - BLOOD CHOLESTEROL INCREASED [None]
  - DIABETES MELLITUS [None]
  - DIABETIC COMA [None]
  - DIABETIC KETOACIDOSIS [None]
  - FLANK PAIN [None]
  - LIGAMENT DISORDER [None]
  - LIGAMENT RUPTURE [None]
  - LIVER DISORDER [None]
  - MENISCUS LESION [None]
  - OBESITY [None]
